FAERS Safety Report 20822691 (Version 3)
Quarter: 2022Q2

REPORT INFORMATION
  Report Type: Other
  Country: US (occurrence: US)
  Receive Date: 20220512
  Receipt Date: 20220609
  Transmission Date: 20220720
  Serious: Yes (Hospitalization, Other)
  Sender: FDA-Public Use
  Company Number: US-Covis Pharma GmbH-2022COV01413

PATIENT
  Age: 28 Year
  Sex: Female

DRUGS (3)
  1. MAKENA [Suspect]
     Active Substance: HYDROXYPROGESTERONE CAPROATE
     Indication: Premature delivery
     Route: 058
     Dates: start: 20220117, end: 20220425
  2. MAKENA [Suspect]
     Active Substance: HYDROXYPROGESTERONE CAPROATE
     Indication: Premature delivery
  3. PNV [Concomitant]
     Indication: Adverse event

REACTIONS (4)
  - Pre-eclampsia [Unknown]
  - Premature delivery [Recovered/Resolved]
  - Hypertension [Not Recovered/Not Resolved]
  - Gestational diabetes [Unknown]

NARRATIVE: CASE EVENT DATE: 20220101
